FAERS Safety Report 4387666-X (Version None)
Quarter: 2004Q2

REPORT INFORMATION
  Report Type: 
  Country: None (occurrence: None)
  Receive Date: 20040623
  Receipt Date: 20040604
  Transmission Date: 20050107
  Serious: Yes (Other)
  Sender: FDA-Public Use
  Company Number: USA040669387

PATIENT
  Age: 76 Year
  Sex: Female

DRUGS (8)
  1. EVISTA [Suspect]
     Indication: OSTEOPOROSIS
  2. FOSAMAX [Concomitant]
  3. OSCAL (CALCIUM CARBONATE) [Concomitant]
  4. VITAMIN D [Concomitant]
  5. DETROL [Concomitant]
  6. ZOCOR [Concomitant]
  7. AMBIEN [Concomitant]
  8. SYNTHROID [Concomitant]

REACTIONS (3)
  - BONE DENSITY DECREASED [None]
  - MALABSORPTION [None]
  - SPINAL COMPRESSION FRACTURE [None]
